FAERS Safety Report 4745197-9 (Version None)
Quarter: 2005Q3

REPORT INFORMATION
  Report Type: 
  Country: None (occurrence: None)
  Receive Date: 20050815
  Receipt Date: 20050809
  Transmission Date: 20060218
  Serious: Yes (Hospitalization)
  Sender: FDA-Public Use
  Company Number: JP-ROCHE-413440

PATIENT
  Age: 61 Year
  Sex: Male

DRUGS (9)
  1. PANALDINE [Suspect]
     Indication: THROMBOSIS PROPHYLAXIS
     Dosage: OTHER INDICATIONS: STENT PLACEMENT, ANGINA PECTORIS.
     Route: 048
     Dates: start: 20050303, end: 20050428
  2. ZANTAC [Concomitant]
     Indication: GASTRITIS
     Dosage: DURATION: 3 YEARS 18 WEEKS.
     Route: 048
     Dates: start: 20020115, end: 20050520
  3. JUVELA N [Concomitant]
     Indication: HYPERLIPIDAEMIA
     Dosage: DURATION: 3 YEARS 18 WEEKS.
     Route: 048
     Dates: start: 20020115, end: 20050520
  4. CYANOCOBALAMIN [Concomitant]
     Indication: DIABETES MELLITUS
     Dosage: DURATION 3 YEARS 19 WEEKS AND 6 DAYS,
     Route: 048
     Dates: start: 20020115, end: 20050602
  5. GLYBURIDE [Concomitant]
     Indication: DIABETES MELLITUS
     Dosage: DURATION: 2 YEARS 32 WEEKS AND 2 DAYS.
     Route: 048
     Dates: start: 20021021, end: 20050602
  6. LIPANTIL [Concomitant]
     Indication: HYPERLIPIDAEMIA
     Route: 048
     Dates: start: 20041203, end: 20050602
  7. ASPIRIN [Concomitant]
     Indication: ANGINA PECTORIS
     Route: 048
     Dates: start: 20050303, end: 20050602
  8. SIGMART [Concomitant]
     Indication: ANGINA PECTORIS
     Route: 048
     Dates: start: 20050303, end: 20050428
  9. GASTROM [Concomitant]
     Indication: GASTRITIS
     Route: 048
     Dates: start: 20050303, end: 20050602

REACTIONS (3)
  - GRANULOCYTOPENIA [None]
  - MALAISE [None]
  - WHITE BLOOD CELL COUNT DECREASED [None]
